FAERS Safety Report 4921394-4 (Version None)
Quarter: 2006Q1

REPORT INFORMATION
  Report Type: 
  Country: None (occurrence: None)
  Receive Date: 20060224
  Receipt Date: 20060123
  Transmission Date: 20060701
  Serious: Yes (Other)
  Sender: FDA-Public Use
  Company Number: 2006UW01198

PATIENT
  Age: 87 Year
  Sex: Female

DRUGS (3)
  1. SEROQUEL [Suspect]
     Indication: BIPOLAR DISORDER
     Route: 048
     Dates: start: 20050406, end: 20060101
  2. SEROQUEL [Suspect]
     Route: 048
     Dates: start: 20060101
  3. PAXIL [Concomitant]
     Indication: DEPRESSION
     Route: 048
     Dates: start: 20021019

REACTIONS (1)
  - STEREOTYPIC MOVEMENT DISORDER [None]
